FAERS Safety Report 14944654 (Version 1)
Quarter: 2018Q2

REPORT INFORMATION
  Report Type: Spontaneous
  Country: US (occurrence: US)
  Receive Date: 20180529
  Receipt Date: 20180529
  Transmission Date: 20180711
  Serious: No
  Sender: FDA-Public Use
  Company Number: US-IPSEN BIOPHARMACEUTICALS, INC.-2018-04052

PATIENT
  Sex: Female

DRUGS (6)
  1. VALSART/HCTZ [Concomitant]
     Dosage: 160-25 MG
  2. SOMATULINE DEPOT [Suspect]
     Active Substance: LANREOTIDE ACETATE
     Indication: ACROMEGALY
     Dosage: 60 MG
     Route: 058
  3. OMEPRAZOLE. [Concomitant]
     Active Substance: OMEPRAZOLE
  4. PREDNISOLONE. [Concomitant]
     Active Substance: PREDNISOLONE
  5. ATORVASTATIN [Concomitant]
     Active Substance: ATORVASTATIN
  6. OFLOXACIN. [Concomitant]
     Active Substance: OFLOXACIN

REACTIONS (1)
  - Alopecia [Unknown]
